FAERS Safety Report 14687136 (Version 2)
Quarter: 2020Q1

REPORT INFORMATION
  Report Type: Report from Study
  Country: None (occurrence: IE)
  Receive Date: 20180328
  Receipt Date: 20200214
  Transmission Date: 20200409
  Serious: Yes (Hospitalization)
  Sender: FDA-Public Use
  Company Number: IE-ABBVIE-18S-229-2301933-00

PATIENT
  Age: 58 Year
  Sex: Male
  Weight: 52.9 kg

DRUGS (11)
  1. LAMIVUDINE. [Suspect]
     Active Substance: LAMIVUDINE
     Indication: ANTIVIRAL TREATMENT
     Dosage: ADDITIONAL INFO: VIA RIG (RADIOLOGICALLY INSERTED GASTROSTOMY)
     Route: 065
     Dates: start: 20140423
  2. CYCLIZINE [Concomitant]
     Active Substance: CYCLIZINE
     Indication: PRODUCT USED FOR UNKNOWN INDICATION
     Dosage: ADDITIONAL INFO: ORAL OR VIA RIG (RADIOLOGICALLY INSERTED GASTROSTOMY)
     Route: 048
  3. LIBRIUM [Concomitant]
     Active Substance: CHLORDIAZEPOXIDE HYDROCHLORIDE
     Indication: ANXIETY
     Route: 048
  4. THIAMINE. [Concomitant]
     Active Substance: THIAMINE
     Indication: VITAMIN B1 DEFICIENCY
     Dosage: DOSAGE FORM: UNSPECIFIED
     Route: 048
  5. CLEXANE [Concomitant]
     Active Substance: ENOXAPARIN SODIUM
     Indication: THROMBOSIS
     Dosage: DOSAGE FORM: UNSPECIFIED
     Route: 048
     Dates: start: 20150904
  6. PARACETAMOL [Concomitant]
     Active Substance: ACETAMINOPHEN
     Indication: PAIN MANAGEMENT
     Route: 048
  7. RITONAVIR. [Suspect]
     Active Substance: RITONAVIR
     Indication: ANTIVIRAL TREATMENT
     Dosage: ADDITIONAL INFO: VIA RIG (RADIOLOGICALLY INSERTED GASTROSTOMY)
     Route: 048
     Dates: start: 20140423, end: 20150819
  8. ABACAVIR. [Suspect]
     Active Substance: ABACAVIR
     Indication: ANTIVIRAL TREATMENT
     Dosage: ADDITIONAL INFO: VIA RIG (RADIOLOGICALLY INSERTED GASTROSTOMY)
     Route: 065
     Dates: start: 20140423
  9. DARUNAVIR [Suspect]
     Active Substance: DARUNAVIR
     Indication: ANTIVIRAL TREATMENT
     Route: 048
     Dates: start: 20140423, end: 20150819
  10. AMLODIPINE [Concomitant]
     Active Substance: AMLODIPINE BESYLATE
     Indication: HYPERTENSION
     Route: 048
  11. DIAZEPAM. [Concomitant]
     Active Substance: DIAZEPAM
     Indication: ANXIETY
     Route: 048

REACTIONS (6)
  - Abdominal pain upper [Recovered/Resolved]
  - Pyrexia [Recovered/Resolved]
  - Malaise [Unknown]
  - Diarrhoea [Recovered/Resolved]
  - Vomiting [Recovered/Resolved]
  - Dysphagia [Unknown]

NARRATIVE: CASE EVENT DATE: 20150901
